FAERS Safety Report 8131889-0 (Version None)
Quarter: 2012Q1

REPORT INFORMATION
  Report Type: 
  Country: None (occurrence: None)
  Receive Date: 20120103
  Receipt Date: 20110923
  Transmission Date: 20120608
  Serious: No
  Sender: FDA-Public Use
  Company Number: AE-2011-000513

PATIENT
  Age: 59 Year
  Sex: Male
  Weight: 82.5547 kg

DRUGS (4)
  1. RIBAVIRIN [Concomitant]
  2. BENICAR [Concomitant]
  3. INCIVEK [Suspect]
     Dosage: 2250 MG (750 MG,1 IN 8 HR)
     Dates: start: 20110714
  4. PEGINTERFERON (PEGINTERFERON ALFA-2A) [Concomitant]

REACTIONS (7)
  - INSOMNIA [None]
  - DRY SKIN [None]
  - DIARRHOEA [None]
  - ABNORMAL DREAMS [None]
  - RASH [None]
  - ANORECTAL DISCOMFORT [None]
  - PRURITUS [None]
